FAERS Safety Report 10049123 (Version 1)
Quarter: 2014Q2

REPORT INFORMATION
  Report Type: Spontaneous
  Country: AU (occurrence: AU)
  Receive Date: 20140401
  Receipt Date: 20140401
  Transmission Date: 20141212
  Serious: Yes (Hospitalization, Other)
  Sender: FDA-Public Use
  Company Number: AU-AMGEN-AUSSP2014021268

PATIENT
  Age: 85 Year
  Sex: Male

DRUGS (2)
  1. XGEVA [Suspect]
     Indication: METASTASES TO BONE
     Dosage: 120 MG, Q4WK
     Route: 058
     Dates: start: 20130614
  2. XGEVA [Suspect]
     Indication: PROSTATE CANCER

REACTIONS (4)
  - Renal failure [Unknown]
  - Jaw operation [Unknown]
  - Chemotherapy [Recovered/Resolved]
  - Depressed mood [Not Recovered/Not Resolved]
